FAERS Safety Report 10573513 (Version 1)
Quarter: 2014Q4

REPORT INFORMATION
  Report Type: Spontaneous
  Country: BR (occurrence: BR)
  Receive Date: 20141110
  Receipt Date: 20141110
  Transmission Date: 20150529
  Serious: Yes (Other)
  Sender: FDA-Public Use
  Company Number: BR-ABBVIE-14P-020-1305468-00

PATIENT
  Sex: Male
  Weight: 68 kg

DRUGS (9)
  1. DEPAKENE [Suspect]
     Active Substance: VALPROIC ACID
     Indication: EPILEPSY
     Route: 048
     Dates: start: 2004, end: 2004
  2. FOLIC ACID. [Concomitant]
     Active Substance: FOLIC ACID
     Indication: SJOGREN^S SYNDROME
     Route: 048
     Dates: start: 2010
  3. ALPRAZOLAM. [Concomitant]
     Active Substance: ALPRAZOLAM
     Indication: PETIT MAL EPILEPSY
     Route: 048
     Dates: start: 2010
  4. METHOTREXATE [Concomitant]
     Active Substance: METHOTREXATE
     Indication: SJOGREN^S SYNDROME
     Dosage: 1 MILLILITER; ONCE A WEEK, ON FRIDAY
     Route: 065
     Dates: start: 2010
  5. RIVOTRIL [Concomitant]
     Active Substance: CLONAZEPAM
     Indication: ADJUVANT THERAPY
     Route: 048
  6. DEPAKOTE ER [Suspect]
     Active Substance: DIVALPROEX SODIUM
     Indication: EPILEPSY
     Route: 048
     Dates: start: 2008, end: 2008
  7. RIVOTRIL [Concomitant]
     Active Substance: CLONAZEPAM
     Indication: EPILEPSY
  8. PREDSIM [Concomitant]
     Active Substance: PREDNISOLONE
     Indication: SJOGREN^S SYNDROME
     Route: 048
     Dates: start: 2010
  9. DEPAKOTE [Suspect]
     Active Substance: DIVALPROEX SODIUM
     Indication: EPILEPSY
     Route: 048
     Dates: start: 2002

REACTIONS (11)
  - Seizure [Recovered/Resolved]
  - Drug ineffective [Unknown]
  - Seizure [Recovered/Resolved]
  - Sjogren^s syndrome [Not Recovered/Not Resolved]
  - Drug ineffective [Unknown]
  - Gastrooesophageal reflux disease [Recovering/Resolving]
  - Seizure [Recovering/Resolving]
  - Seizure [Recovered/Resolved]
  - Petit mal epilepsy [Recovering/Resolving]
  - Seizure [Recovered/Resolved]
  - Loss of consciousness [Recovered/Resolved]

NARRATIVE: CASE EVENT DATE: 2004
